FAERS Safety Report 5765108-7 (Version None)
Quarter: 2008Q2

REPORT INFORMATION
  Report Type: 
  Country: None (occurrence: None)
  Receive Date: 20080605
  Receipt Date: 20080529
  Transmission Date: 20081010
  Serious: Yes (Life-Threatening, Hospitalization)
  Sender: FDA-Public Use
  Company Number: 2008-178185-NL

PATIENT
  Age: 56 Year
  Sex: Male

DRUGS (5)
  1. ZEMURON [Suspect]
     Indication: ENDOTRACHEAL INTUBATION
     Dosage: INTRAVENOUS (NOS), DOSE: BETWEEN 40 AND 50 CC
     Route: 042
     Dates: start: 20080521, end: 20080521
  2. ZEMURON [Suspect]
     Indication: SURGERY
     Dosage: INTRAVENOUS (NOS), DOSE: BETWEEN 40 AND 50 CC
     Route: 042
     Dates: start: 20080521, end: 20080521
  3. ZEMURON [Suspect]
     Indication: ENDOTRACHEAL INTUBATION
     Dosage: 30 ML INTRAVENOUS (NOS)
     Route: 042
     Dates: start: 20080521, end: 20080521
  4. ZEMURON [Suspect]
     Indication: SURGERY
     Dosage: 30 ML INTRAVENOUS (NOS)
     Route: 042
     Dates: start: 20080521, end: 20080521
  5. GELFOAM [Suspect]

REACTIONS (4)
  - ANAPHYLACTIC SHOCK [None]
  - BLOOD PRESSURE DECREASED [None]
  - BRONCHOSPASM [None]
  - COLLAPSE OF LUNG [None]
